FAERS Safety Report 11015355 (Version 2)
Quarter: 2015Q2

REPORT INFORMATION
  Report Type: Spontaneous
  Country: US (occurrence: US)
  Receive Date: 20150412
  Receipt Date: 20150525
  Transmission Date: 20150821
  Serious: No
  Sender: FDA-Public Use
  Company Number: US-JNJFOC-20141206904

PATIENT
  Age: 47 Year
  Sex: Female
  Weight: 53.07 kg

DRUGS (4)
  1. CALCIUM WITH VITAMIN D [Concomitant]
     Active Substance: CALCIUM\VITAMIN D
     Indication: ARTHRITIS
     Dosage: 600MG/400MG/
     Route: 048
     Dates: start: 2011
  2. METHOTREXATE [Concomitant]
     Active Substance: METHOTREXATE
     Indication: ARTHRITIS
     Route: 048
     Dates: start: 2011
  3. SIMPONI [Suspect]
     Active Substance: GOLIMUMAB
     Indication: ARTHRITIS
     Dosage: ABOUT A YEAR AND A HALF TO TWO YEARS PRIOR TO THE DATE OF THIS REPORT
     Route: 058
  4. FOLIC ACID. [Concomitant]
     Active Substance: FOLIC ACID
     Route: 048
     Dates: start: 2011

REACTIONS (2)
  - Drug dose omission [Not Recovered/Not Resolved]
  - Syringe issue [Not Recovered/Not Resolved]

NARRATIVE: CASE EVENT DATE: 20141205
